FAERS Safety Report 12436520 (Version 2)
Quarter: 2016Q4

REPORT INFORMATION
  Report Type: Spontaneous
  Country: PE (occurrence: PE)
  Receive Date: 20160606
  Receipt Date: 20161202
  Transmission Date: 20170207
  Serious: Yes (Other)
  Sender: FDA-Public Use
  Company Number: PE-PFIZER INC-2016278782

PATIENT
  Age: 70 Year
  Sex: Female

DRUGS (3)
  1. LYRICA [Suspect]
     Active Substance: PREGABALIN
     Indication: FIBROMYALGIA
     Dosage: 1 DF, WEEKLY
  2. LYRICA [Suspect]
     Active Substance: PREGABALIN
     Dosage: 75 MG, 1X/DAY
  3. LYRICA [Suspect]
     Active Substance: PREGABALIN
     Dosage: 150 MG, ALTERNATE DAY

REACTIONS (8)
  - Dizziness [Not Recovered/Not Resolved]
  - Disease progression [Unknown]
  - Feeling abnormal [Unknown]
  - Pain in extremity [Unknown]
  - Varicose vein [Unknown]
  - Fibromyalgia [Recovered/Resolved]
  - Abasia [Unknown]
  - Intentional product misuse [Unknown]
